FAERS Safety Report 7042061-X (Version None)
Quarter: 2010Q4

REPORT INFORMATION
  Report Type: 
  Country: None (occurrence: None)
  Receive Date: 20101013
  Receipt Date: 20091020
  Transmission Date: 20110411
  Serious: No
  Sender: FDA-Public Use
  Company Number: US-ASTRAZENECA-2009SE21370

PATIENT
  Age: 78 Year
  Sex: Male
  Weight: 91.6 kg

DRUGS (4)
  1. SYMBICORT [Suspect]
     Indication: CHRONIC OBSTRUCTIVE PULMONARY DISEASE
     Dosage: 160/4.5 UG
     Route: 055
     Dates: start: 20090901
  2. PULMICORT RESPULES [Concomitant]
  3. COUMADIN [Concomitant]
  4. AMINOPHYLLINE [Concomitant]

REACTIONS (1)
  - ABDOMINAL NEOPLASM [None]
